FAERS Safety Report 23300054 (Version 2)
Quarter: 2023Q4

REPORT INFORMATION
  Report Type: Spontaneous
  Country: US (occurrence: US)
  Receive Date: 20231215
  Receipt Date: 20231219
  Transmission Date: 20240110
  Serious: Yes (Other)
  Sender: FDA-Public Use
  Company Number: US-BRISTOL-MYERS SQUIBB COMPANY-2023-181689

PATIENT
  Age: 83 Year
  Sex: Male
  Weight: 75.75 kg

DRUGS (5)
  1. POMALYST [Suspect]
     Active Substance: POMALIDOMIDE
     Indication: Plasma cell myeloma
     Dosage: DAILY FOR 21 DAYS OFF 7 DAYS
     Route: 048
     Dates: end: 20231213
  2. DEXAMETHASONE [Concomitant]
     Active Substance: DEXAMETHASONE
     Indication: Product used for unknown indication
  3. LOSARTAN [Concomitant]
     Active Substance: LOSARTAN
     Indication: Blood pressure measurement
  4. GABAPENTIN [Concomitant]
     Active Substance: GABAPENTIN
     Indication: Blood pressure measurement
  5. EMPLICITI [Concomitant]
     Active Substance: ELOTUZUMAB
     Indication: Blood pressure measurement
     Route: 042

REACTIONS (2)
  - Plasma cell myeloma [Unknown]
  - Drug ineffective [Unknown]
